FAERS Safety Report 4274736-X (Version None)
Quarter: 2004Q1

REPORT INFORMATION
  Report Type: 
  Country: None (occurrence: None)
  Receive Date: 20040115
  Receipt Date: 20031226
  Transmission Date: 20041129
  Serious: Yes (Other)
  Sender: FDA-Public Use
  Company Number: JP_031202429

PATIENT
  Age: 75 Year
  Sex: Female

DRUGS (2)
  1. GEMZAR [Suspect]
  2. NEDAPLATIN [Concomitant]

REACTIONS (3)
  - DRUG ERUPTION [None]
  - OEDEMA [None]
  - PYREXIA [None]
